FAERS Safety Report 23224868 (Version 1)
Quarter: 2023Q4

REPORT INFORMATION
  Report Type: Report from Study
  Country: US (occurrence: US)
  Receive Date: 20231124
  Receipt Date: 20231124
  Transmission Date: 20240110
  Serious: Yes (Hospitalization, Other)
  Sender: FDA-Public Use
  Company Number: US-TAKEDA-2021TUS064568

PATIENT
  Sex: Male
  Weight: 83 kg

DRUGS (12)
  1. TEDUGLUTIDE [Suspect]
     Active Substance: TEDUGLUTIDE
     Indication: Clostridium difficile colitis
     Dosage: 0.2 MILLILITER, QD
     Route: 058
     Dates: end: 20211018
  2. TEDUGLUTIDE [Suspect]
     Active Substance: TEDUGLUTIDE
     Indication: Clostridium difficile colitis
     Dosage: 0.2 MILLILITER, QD
     Route: 058
     Dates: end: 20211018
  3. TEDUGLUTIDE [Suspect]
     Active Substance: TEDUGLUTIDE
     Indication: Clostridium difficile colitis
     Dosage: 0.2 MILLILITER, QD
     Route: 058
     Dates: end: 20211018
  4. TEDUGLUTIDE [Suspect]
     Active Substance: TEDUGLUTIDE
     Indication: Clostridium difficile colitis
     Dosage: 0.2 MILLILITER, QD
     Route: 058
     Dates: end: 20211018
  5. TEDUGLUTIDE [Suspect]
     Active Substance: TEDUGLUTIDE
     Indication: Malabsorption
     Dosage: 0.2 MILLILITER, QD
     Route: 058
     Dates: start: 20231119
  6. TEDUGLUTIDE [Suspect]
     Active Substance: TEDUGLUTIDE
     Indication: Malabsorption
     Dosage: 0.2 MILLILITER, QD
     Route: 058
     Dates: start: 20231119
  7. TEDUGLUTIDE [Suspect]
     Active Substance: TEDUGLUTIDE
     Indication: Malabsorption
     Dosage: 0.2 MILLILITER, QD
     Route: 058
     Dates: start: 20231119
  8. TEDUGLUTIDE [Suspect]
     Active Substance: TEDUGLUTIDE
     Indication: Malabsorption
     Dosage: 0.2 MILLILITER, QD
     Route: 058
     Dates: start: 20231119
  9. PANTOPRAZOLE SODIUM [Concomitant]
     Active Substance: PANTOPRAZOLE SODIUM
     Dosage: UNK
     Route: 065
  10. ALBUTEROL SULFATE [Concomitant]
     Active Substance: ALBUTEROL SULFATE
     Dosage: UNK
     Route: 065
  11. MONTELUKAST SODIUM [Concomitant]
     Active Substance: MONTELUKAST SODIUM
     Dosage: UNK
     Route: 065
  12. FLONASE SENSIMIST ALLERGY RELIEF [Concomitant]
     Active Substance: FLUTICASONE FUROATE
     Dosage: UNK
     Route: 065

REACTIONS (10)
  - Fall [Recovered/Resolved]
  - Chronic kidney disease [Unknown]
  - Road traffic accident [Unknown]
  - Rib fracture [Unknown]
  - Abdominal discomfort [Unknown]
  - Diarrhoea [Unknown]
  - Withdrawal syndrome [Unknown]
  - Off label use [Unknown]
  - Incorrect product administration duration [Unknown]
  - Inability to afford medication [Unknown]
